FAERS Safety Report 6020467-5 (Version None)
Quarter: 2008Q4

REPORT INFORMATION
  Report Type: 
  Country: None (occurrence: None)
  Receive Date: 20081222
  Receipt Date: 20081211
  Transmission Date: 20090506
  Serious: Yes (Hospitalization)
  Sender: FDA-Public Use
  Company Number: 6047712

PATIENT
  Age: 63 Year
  Sex: Female

DRUGS (4)
  1. LEVOTHYROXINE SODIUM [Suspect]
     Indication: HYPOTHYROIDISM
     Dosage: 25 MCG (25 MCG, 1 IN 1 D), ORAL
     Route: 048
     Dates: start: 20050101
  2. REVAXIS (INJECTION)(DIPHTHERIA TOXOID, TETANUS TOXOID, POLIOVIRUS VACC [Suspect]
     Indication: IMMUNISATION
     Dates: start: 20080728, end: 20080728
  3. BECONASE [Suspect]
     Indication: ASTHMA
     Dosage: 1 DOSAGE FORMS (1 DOSAGE FORMS, 1 IN 1 D)  RESPIRATORY (INHALATION)
     Route: 055
     Dates: start: 19920101
  4. MOMETASONE FUROATE [Suspect]
     Indication: SINUSITIS
     Dosage: (1 DOSAGE FORMS, 1 IN 1 D)  RESPIRATORY (INHALATION)
     Route: 055
     Dates: start: 19920101

REACTIONS (4)
  - CHOLESTASIS [None]
  - CYTOLYTIC HEPATITIS [None]
  - INFLUENZA LIKE ILLNESS [None]
  - PANCREATITIS ACUTE [None]
